FAERS Safety Report 7241730-6 (Version None)
Quarter: 2011Q1

REPORT INFORMATION
  Report Type: 
  Country: None (occurrence: None)
  Receive Date: 20110124
  Receipt Date: 20110111
  Transmission Date: 20110831
  Serious: Yes (Other)
  Sender: FDA-Public Use
  Company Number: US-WATSON-2011-00476

PATIENT
  Age: 3 Year

DRUGS (1)
  1. AMLODIPINE BESYLATE [Suspect]
     Indication: PRODUCT USED FOR UNKNOWN INDICATION
     Dosage: UNK
     Route: 048

REACTIONS (2)
  - TOXICITY TO VARIOUS AGENTS [None]
  - LETHARGY [None]
